FAERS Safety Report 18112592 (Version 1)
Quarter: 2020Q3

REPORT INFORMATION
  Report Type: Spontaneous
  Country: US (occurrence: US)
  Receive Date: 20200805
  Receipt Date: 20200805
  Transmission Date: 20201103
  Serious: No
  Sender: FDA-Public Use
  Company Number: US-BAYER-2020-153203

PATIENT
  Sex: Female

DRUGS (1)
  1. MIRALAX [Suspect]
     Active Substance: POLYETHYLENE GLYCOL 3350
     Dosage: TWO IN A ROW AT NIGHT AND SOME EARLIER
     Route: 048

REACTIONS (2)
  - Nightmare [Unknown]
  - Extra dose administered [Unknown]
